FAERS Safety Report 7901717 (Version 11)
Quarter: 2015Q2

REPORT INFORMATION
  Report Type: Spontaneous
  Country: US (occurrence: US)
  Receive Date: 20110415
  Receipt Date: 20150430
  Transmission Date: 20150821
  Serious: Yes (Life-Threatening, Other)
  Sender: FDA-Public Use
  Company Number: US-ASTRAZENECA-2011SE19745

PATIENT
  Age: 89 Year
  Sex: Male
  Weight: 60.8 kg

DRUGS (4)
  1. TOPROL XL [Suspect]
     Active Substance: METOPROLOL SUCCINATE
     Route: 048
  2. NEXIUM [Suspect]
     Active Substance: ESOMEPRAZOLE MAGNESIUM
     Indication: ULCER
     Route: 048
  3. CRESTOR [Suspect]
     Active Substance: ROSUVASTATIN CALCIUM
     Indication: BLOOD CHOLESTEROL
     Route: 048
  4. BLOOD PRESSURE MEDICATION [Concomitant]
     Active Substance: UNSPECIFIED INGREDIENT

REACTIONS (24)
  - Coma [Unknown]
  - Accident [Unknown]
  - Restlessness [Unknown]
  - Back injury [Unknown]
  - Drug dose omission [Unknown]
  - Spinal disorder [Unknown]
  - Glaucoma [Unknown]
  - Gastrooesophageal reflux disease [Unknown]
  - Malaise [Unknown]
  - Pain [Unknown]
  - Blood pressure increased [Unknown]
  - Gait disturbance [Unknown]
  - Body height decreased [Unknown]
  - Musculoskeletal disorder [Unknown]
  - Pyrexia [Unknown]
  - Adverse event [Unknown]
  - Fall [Unknown]
  - Gout [Unknown]
  - Hand deformity [Unknown]
  - Nasopharyngitis [Unknown]
  - Atrioventricular block [Unknown]
  - Hyperchlorhydria [Unknown]
  - Ulcer [Unknown]
  - Intentional product misuse [Unknown]

NARRATIVE: CASE EVENT DATE: 1995
